FAERS Safety Report 5328953-8 (Version None)
Quarter: 2007Q2

REPORT INFORMATION
  Report Type: 
  Country: None (occurrence: None)
  Receive Date: 20070518
  Receipt Date: 20070511
  Transmission Date: 20071010
  Serious: Yes (Death)
  Sender: FDA-Public Use
  Company Number: JP-SANOFI-SYNTHELABO-A01200704763

PATIENT
  Age: 62 Year
  Sex: Male

DRUGS (19)
  1. ASPARA K [Concomitant]
     Indication: DRUG USE FOR UNKNOWN INDICATION
     Dosage: 2 DF
     Route: 065
     Dates: start: 20070426
  2. BFLUID [Concomitant]
     Indication: DRUG USE FOR UNKNOWN INDICATION
     Dosage: 1000 ML
     Route: 042
     Dates: start: 20070426, end: 20070426
  3. BFLUID [Concomitant]
     Dosage: 1000 ML
     Route: 042
     Dates: start: 20070427
  4. PREDOPA [Concomitant]
     Indication: DRUG USE FOR UNKNOWN INDICATION
     Dosage: 1 DF
     Route: 065
     Dates: start: 20070425
  5. PANSPORIN [Concomitant]
     Indication: DRUG USE FOR UNKNOWN INDICATION
     Dosage: 1 G
     Route: 042
     Dates: start: 20070425, end: 20070425
  6. PANSPORIN [Concomitant]
     Dosage: 2 G
     Route: 042
     Dates: start: 20070426, end: 20070426
  7. PANSPORIN [Concomitant]
     Dosage: 1 G
     Route: 042
     Dates: start: 20070427
  8. SUBVITAN [Concomitant]
     Indication: DRUG USE FOR UNKNOWN INDICATION
     Dosage: 1 DF
     Route: 065
     Dates: start: 20070424
  9. BUSCOPAN [Concomitant]
     Indication: DRUG USE FOR UNKNOWN INDICATION
     Dosage: 1 DF
     Route: 065
     Dates: start: 20070424
  10. PENTAGIN [Concomitant]
     Indication: DRUG USE FOR UNKNOWN INDICATION
     Dosage: 2 DF
     Route: 065
     Dates: start: 20070424
  11. ATARAX [Concomitant]
     Indication: DRUG USE FOR UNKNOWN INDICATION
     Dosage: 1 DF
     Route: 065
     Dates: start: 20070424
  12. ISOTONIC SODIUM CHLORIDE [Concomitant]
     Indication: DRUG USE FOR UNKNOWN INDICATION
     Dosage: 120 ML
     Route: 065
     Dates: start: 20070424, end: 20070424
  13. ISOTONIC SODIUM CHLORIDE [Concomitant]
     Dosage: 1000 ML
     Route: 065
     Dates: start: 20070426, end: 20070426
  14. ISOTONIC SODIUM CHLORIDE [Concomitant]
     Dosage: 100 ML
     Route: 065
     Dates: start: 20070427
  15. LACTEC [Concomitant]
     Indication: DRUG USE FOR UNKNOWN INDICATION
     Dosage: 1 DF
     Route: 065
     Dates: start: 20070424
  16. AMIGRAND [Concomitant]
     Indication: DRUG USE FOR UNKNOWN INDICATION
     Dosage: 2 DF
     Route: 065
     Dates: start: 20070424
  17. OPYSTAN [Concomitant]
     Indication: DRUG USE FOR UNKNOWN INDICATION
     Dosage: 1 DF
     Route: 065
     Dates: start: 20070424
  18. VOLTAREN [Concomitant]
     Indication: DRUG USE FOR UNKNOWN INDICATION
     Dosage: 50 MG
     Route: 054
     Dates: start: 20070426
  19. MYSLEE [Suspect]
     Indication: DRUG USE FOR UNKNOWN INDICATION
     Route: 048
     Dates: start: 20070425, end: 20070426

REACTIONS (13)
  - ABNORMAL BEHAVIOUR [None]
  - BLOOD PRESSURE IMMEASURABLE [None]
  - CHEST DISCOMFORT [None]
  - DRUG WITHDRAWAL SYNDROME [None]
  - FALL [None]
  - HAEMORRHAGE [None]
  - HEART RATE DECREASED [None]
  - INCOHERENT [None]
  - INSOMNIA [None]
  - LACERATION [None]
  - MUSCLE TWITCHING [None]
  - PERIPHERAL COLDNESS [None]
  - STRESS [None]
